FAERS Safety Report 5750284-2 (Version None)
Quarter: 2008Q2

REPORT INFORMATION
  Report Type: 
  Country: None (occurrence: None)
  Receive Date: 20080522
  Receipt Date: 20080522
  Transmission Date: 20081010
  Serious: Yes (Death, Life-Threatening, Hospitalization)
  Sender: FDA-Public Use
  Company Number: None

PATIENT
  Age: 78 Year
  Sex: Female
  Weight: 49.8957 kg

DRUGS (1)
  1. DIGITEK [Suspect]
     Indication: HEART RATE IRREGULAR
     Dates: start: 20041101, end: 20080323

REACTIONS (4)
  - ANOREXIA [None]
  - ASTHENIA [None]
  - PULSE ABSENT [None]
  - WEIGHT DECREASED [None]
